FAERS Safety Report 4595017-0 (Version None)
Quarter: 2005Q1

REPORT INFORMATION
  Report Type: 
  Country: None (occurrence: None)
  Receive Date: 20050223
  Receipt Date: 20050210
  Transmission Date: 20050727
  Serious: Yes (Other)
  Sender: FDA-Public Use
  Company Number: 2003010421

PATIENT
  Age: 76 Year
  Sex: Female
  Weight: 63.05 kg

DRUGS (11)
  1. GEODON [Suspect]
     Indication: SCHIZOPHRENIA
     Dosage: 40 MG (2 IN 1 D), ORAL
     Route: 048
     Dates: start: 20030304, end: 20030306
  2. AMIODARONE HCL [Suspect]
     Indication: ILL-DEFINED DISORDER
     Dates: start: 20030305
  3. ACETYLSALICYLIC ACID [Concomitant]
  4. DILTIAZEM HYDROCHLORIDE [Concomitant]
  5. ENOXAPARIN SODIUM [Concomitant]
  6. FUROSEMIDE [Concomitant]
  7. ISOSORBIDE MONONITRATE [Concomitant]
  8. PENUMOCOCCAL VACCINE [Concomitant]
  9. METOPROLOL TARTRATE [Concomitant]
  10. RAMIPRIL [Concomitant]
  11. MAGNESIUM OXIDE [Concomitant]

REACTIONS (17)
  - ARRHYTHMIA [None]
  - ATRIAL FIBRILLATION [None]
  - DILATATION ATRIAL [None]
  - ELECTROCARDIOGRAM ABNORMAL [None]
  - ELECTROCARDIOGRAM QT CORRECTED INTERVAL PROLONGED [None]
  - ELECTROCARDIOGRAM QT PROLONGED [None]
  - ELECTROCARDIOGRAM REPOLARISATION ABNORMALITY [None]
  - ELECTROCARDIOGRAM ST SEGMENT ABNORMAL [None]
  - ELECTROCARDIOGRAM ST SEGMENT DEPRESSION [None]
  - ELECTROCARDIOGRAM T WAVE ABNORMAL [None]
  - ELECTROCARDIOGRAM T WAVE INVERSION [None]
  - HEART INJURY [None]
  - MYOCARDIAL ISCHAEMIA [None]
  - SINUS BRADYCARDIA [None]
  - TORSADE DE POINTES [None]
  - VENTRICULAR EXTRASYSTOLES [None]
  - VENTRICULAR HYPERTROPHY [None]
